FAERS Safety Report 17536882 (Version 2)
Quarter: 2020Q1

REPORT INFORMATION
  Report Type: Spontaneous
  Country: DE (occurrence: DE)
  Receive Date: 20200313
  Receipt Date: 20200317
  Transmission Date: 20200409
  Serious: Yes (Other)
  Sender: FDA-Public Use
  Company Number: NVSC2020DE068460

PATIENT
  Sex: Female

DRUGS (4)
  1. CAFFEINE. [Concomitant]
     Active Substance: CAFFEINE
     Indication: PRODUCT USED FOR UNKNOWN INDICATION
     Dosage: RECEIVED AT AT GESTATIONAL WEEK 40
     Route: 065
  2. ERGOTAMINE [Suspect]
     Active Substance: CAFFEINE\ERGOTAMINE\ERGOTAMINE TARTRATE
     Indication: MIGRAINE
     Dosage: RECEIVED AT AT GESTATIONAL WEEK 38
     Route: 065
  3. ASPIRIN. [Suspect]
     Active Substance: ASPIRIN
     Indication: MIGRAINE
     Dosage: RECEIVED AT AT GESTATIONAL WEEK 40
     Route: 065
  4. ACETAMINOPHEN (PARACETAMOL) [Suspect]
     Active Substance: ACETAMINOPHEN
     Indication: MIGRAINE
     Dosage: 4000 MG, QD (RECEIVED AT AT GESTATIONAL WEEK 40)
     Route: 065

REACTIONS (2)
  - Maternal exposure during pregnancy [Not Recovered/Not Resolved]
  - Stillbirth [Not Recovered/Not Resolved]
